FAERS Safety Report 20235818 (Version 1)
Quarter: 2021Q4

REPORT INFORMATION
  Report Type: Spontaneous
  Country: MY (occurrence: MY)
  Receive Date: 20211228
  Receipt Date: 20211228
  Transmission Date: 20220303
  Serious: Yes (Other)
  Sender: FDA-Public Use
  Company Number: ALC2021MY006741

PATIENT
  Age: 1 Month
  Sex: Male

DRUGS (3)
  1. ALCAINE [Suspect]
     Active Substance: PROPARACAINE HYDROCHLORIDE
     Indication: Ophthalmological examination
     Dosage: 1 GTT, QD
     Route: 047
  2. MYDFRIN [Suspect]
     Active Substance: PHENYLEPHRINE HYDROCHLORIDE
     Indication: Ophthalmological examination
     Dosage: 1 GTT, QD
     Route: 047
  3. MYDRIACYL [Suspect]
     Active Substance: TROPICAMIDE
     Indication: Ophthalmological examination
     Dosage: 1 GTT, QD
     Route: 047

REACTIONS (2)
  - Bradycardia [Recovered/Resolved]
  - Oxygen saturation decreased [Recovered/Resolved]
